FAERS Safety Report 7561468-5 (Version None)
Quarter: 2011Q2

REPORT INFORMATION
  Report Type: 
  Country: None (occurrence: None)
  Receive Date: 20110621
  Receipt Date: 20110608
  Transmission Date: 20111010
  Serious: Yes (Other)
  Sender: FDA-Public Use
  Company Number: BR-JNJFOC-20110605191

PATIENT
  Age: 62 Year
  Sex: Female

DRUGS (3)
  1. REMICADE [Suspect]
     Indication: RHEUMATOID ARTHRITIS
     Route: 042
     Dates: start: 20101227
  2. REMICADE [Suspect]
     Route: 042
     Dates: start: 20110503
  3. ANALGESIC [Concomitant]
     Indication: PAIN
     Dates: start: 20101227

REACTIONS (5)
  - HYPERTENSION [None]
  - PYREXIA [None]
  - HYPOTENSION [None]
  - TREMOR [None]
  - INFUSION RELATED REACTION [None]
